FAERS Safety Report 6844009-7 (Version None)
Quarter: 2010Q3

REPORT INFORMATION
  Report Type: 
  Country: None (occurrence: None)
  Receive Date: 20100715
  Receipt Date: 20100706
  Transmission Date: 20110219
  Serious: Yes (Hospitalization)
  Sender: FDA-Public Use
  Company Number: NL-WATSON-2010-08986

PATIENT
  Age: 83 Year
  Sex: Female

DRUGS (1)
  1. CITALOPRAM HYDROBROMIDE [Suspect]
     Indication: DEPRESSION
     Dosage: 10 -20 MG, DAILY
     Route: 048

REACTIONS (2)
  - HEPATITIS [None]
  - HEPATOCELLULAR INJURY [None]
